FAERS Safety Report 16463809 (Version 1)
Quarter: 2019Q2

REPORT INFORMATION
  Report Type: Spontaneous
  Country: US (occurrence: US)
  Receive Date: 20190513
  Receipt Date: 20190513
  Transmission Date: 20190711
  Serious: No
  Sender: FDA-Public Use
  Company Number: None

PATIENT
  Age: 26 Year
  Sex: Female

DRUGS (1)
  1. EMGALITY [Suspect]
     Active Substance: GALCANEZUMAB-GNLM
     Indication: MIGRAINE WITHOUT AURA
     Dosage: 120MG EVERY 28 DAYS SUBQ
     Route: 058
     Dates: start: 20190117

REACTIONS (3)
  - Injection site swelling [None]
  - Injection site discolouration [None]
  - Hot flush [None]

NARRATIVE: CASE EVENT DATE: 20190120
